FAERS Safety Report 24671013 (Version 1)
Quarter: 2024Q4

REPORT INFORMATION
  Report Type: Spontaneous
  Country: DE (occurrence: DE)
  Receive Date: 20241127
  Receipt Date: 20241127
  Transmission Date: 20250114
  Serious: Yes (Life-Threatening, Hospitalization, Congenital Anomaly, Other)
  Sender: SANDOZ
  Company Number: None

PATIENT
  Age: 16 Month
  Sex: Male

DRUGS (11)
  1. CYCLOPHOSPHAMIDE [Suspect]
     Active Substance: CYCLOPHOSPHAMIDE
     Indication: Burkitt^s lymphoma
     Dosage: 750 MG/M2 OVER 1-HOUR ON DAY 2 (REPEATED DAY 21, TOTAL OF 5 CYCLES)
     Route: 064
  2. CYTARABINE [Suspect]
     Active Substance: CYTARABINE
     Indication: Burkitt^s lymphoma
     Dosage: 150 MG/M2 OVER 1-HOUR EVERY 12 HOURS ON DAYS 2-6 PRENATAL PHASE(REPEATED DAY 21, TOTAL OF 5 CYCLES)
     Route: 064
  3. CYTARABINE [Suspect]
     Active Substance: CYTARABINE
     Indication: Nervous system disorder prophylaxis
     Dosage: ON DAYS 2 AND 6 PRENATAL PHASE
     Route: 064
  4. DEXAMETHASONE [Suspect]
     Active Substance: DEXAMETHASONE
     Indication: Burkitt^s lymphoma stage IV
     Dosage: 4 MG  ON DAYS 2 AND 6 PRENATAL PHASE
     Route: 064
  5. DOXORUBICIN [Suspect]
     Active Substance: DOXORUBICIN
     Indication: Burkitt^s lymphoma stage IV
     Dosage: 50 MG/M2 OVER 30-MINUTES ON DAY 2 (REPEATED DAY 21, TOTAL OF 5 CYCLES)
     Route: 064
  6. ETOPOSIDE [Suspect]
     Active Substance: ETOPOSIDE
     Indication: Burkitt^s lymphoma stage IV
     Dosage: 100 MG/M2 1-HOUR ON DAYS 2-4 (REPEATED DAY 21, TOTAL OF 5 CYCLES)
     Route: 064
  7. FILGRASTIM [Suspect]
     Active Substance: FILGRASTIM
     Indication: Drug therapy
     Dosage: 10 MICROGRAM/KILOGRAM/DAY ON DAYS 6-11 PRENATAL PHASE
     Route: 064
  8. MESNA [Suspect]
     Active Substance: MESNA
     Indication: Drug therapy
     Dosage: 200 MG/M2 AT 0, 4 AND 8 HOURS AFTER CPA DAY 2 PRENATAL PHASE
     Route: 064
  9. PREDNISOLONE [Suspect]
     Active Substance: PREDNISOLONE
     Indication: Burkitt^s lymphoma stage IV
     Dosage: 100 MG ORALLY ON DAYS 2-5 (REPEATED DAY 21, TOTAL OF 5 CYCLES)PRENATAL PHASE
     Route: 064
  10. RITUXIMAB [Suspect]
     Active Substance: RITUXIMAB
     Indication: Burkitt^s lymphoma stage IV
     Dosage: 375 MG/M2 OVER 3-HOURS ON DAY 1 (REPEATED DAY 21, TOTAL OF 5 CYCLES)PRENATAL PHASE
     Route: 064
  11. VINCRISTINE [Suspect]
     Active Substance: VINCRISTINE
     Indication: Burkitt^s lymphoma stage IV
     Dosage: 2 MG ON DAY 2 (REPEATED DAY 21, TOTAL OF 5 CYCLES) PRENATAL PHASE
     Route: 064

REACTIONS (16)
  - Hypogammaglobulinaemia [Not Recovered/Not Resolved]
  - Bacterial infection [Recovered/Resolved]
  - Low birth weight baby [Recovered/Resolved]
  - Foetal growth restriction [Recovered/Resolved]
  - Foetal exposure during pregnancy [Unknown]
  - Plasmablast count increased [Unknown]
  - Infection [Recovered/Resolved]
  - Vaccine induced antibody absent [Unknown]
  - B-lymphocyte count decreased [Not Recovered/Not Resolved]
  - Premature baby [Unknown]
  - Plasma cells decreased [Not Recovered/Not Resolved]
  - Combined immunodeficiency [Recovered/Resolved]
  - Small for dates baby [Unknown]
  - Blood immunoglobulin G decreased [Not Recovered/Not Resolved]
  - Blood immunoglobulin A decreased [Not Recovered/Not Resolved]
  - Maternal exposure during pregnancy [Recovered/Resolved]
